FAERS Safety Report 23176567 (Version 1)
Quarter: 2023Q4

REPORT INFORMATION
  Report Type: Spontaneous
  Country: US (occurrence: US)
  Receive Date: 20231113
  Receipt Date: 20231113
  Transmission Date: 20240109
  Serious: No
  Sender: FDA-Public Use
  Company Number: US-PERRIGO-22US013743

PATIENT
  Age: 45 Year
  Sex: Male
  Weight: 81.633 kg

DRUGS (2)
  1. POLYETHYLENE GLYCOL 3350 [Suspect]
     Active Substance: POLYETHYLENE GLYCOL 3350
     Indication: Bowel preparation
     Dosage: 17 G, SINGLE
     Route: 048
     Dates: start: 20221010, end: 20221010
  2. SIMVASTATIN [Concomitant]
     Active Substance: SIMVASTATIN
     Indication: Blood cholesterol increased
     Dosage: 10 MG, UNKNOWN
     Route: 048
     Dates: start: 202209

REACTIONS (2)
  - Vomiting [Recovered/Resolved]
  - Off label use [Recovered/Resolved]

NARRATIVE: CASE EVENT DATE: 20221010
